FAERS Safety Report 5424786-2 (Version None)
Quarter: 2007Q3

REPORT INFORMATION
  Report Type: 
  Country: None (occurrence: None)
  Receive Date: 20070824
  Receipt Date: 20070816
  Transmission Date: 20080115
  Serious: Yes (Other)
  Sender: FDA-Public Use
  Company Number: US-AMGEN-STX239161

PATIENT
  Sex: Female

DRUGS (2)
  1. ENBREL [Suspect]
     Indication: RHEUMATOID ARTHRITIS
     Route: 058
     Dates: start: 20070702
  2. METHOTREXATE SODIUM [Concomitant]
     Dates: start: 20070119

REACTIONS (2)
  - DIPLOPIA [None]
  - INJECTION SITE ERYTHEMA [None]
